FAERS Safety Report 6994232-6 (Version None)
Quarter: 2010Q3

REPORT INFORMATION
  Report Type: 
  Country: None (occurrence: None)
  Receive Date: 20100917
  Receipt Date: 20091112
  Transmission Date: 20110219
  Serious: Yes (Other)
  Sender: FDA-Public Use
  Company Number: US-ASTRAZENECA-2008UW13535

PATIENT
  Age: 36 Year
  Sex: Male
  Weight: 129.3 kg

DRUGS (8)
  1. SEROQUEL [Suspect]
     Indication: SCHIZOPHRENIA
     Route: 048
     Dates: start: 19940101, end: 20000101
  2. SEROQUEL [Suspect]
     Indication: DEPRESSION
     Route: 048
     Dates: start: 19940101, end: 20000101
  3. ABILIFY [Concomitant]
  4. GEODON [Concomitant]
  5. RISPERDAL [Concomitant]
  6. THORAZINE [Concomitant]
     Dates: start: 19910101, end: 19940101
  7. ZYPREXA [Concomitant]
     Dates: start: 19940101, end: 19990101
  8. SYMBYAX [Concomitant]
     Dates: start: 19940101

REACTIONS (4)
  - HYPERTENSION [None]
  - PANCREATITIS [None]
  - TARDIVE DYSKINESIA [None]
  - TYPE 2 DIABETES MELLITUS [None]
